FAERS Safety Report 10617491 (Version 1)
Quarter: 2014Q4

REPORT INFORMATION
  Report Type: Spontaneous
  Country: FR (occurrence: FR)
  Receive Date: 20141201
  Receipt Date: 20141201
  Transmission Date: 20150529
  Serious: Yes (Hospitalization)
  Sender: FDA-Public Use
  Company Number: FR-SA-2014SA161286

PATIENT
  Age: 77 Year
  Sex: Male

DRUGS (28)
  1. METFORMIN [Concomitant]
     Active Substance: METFORMIN HYDROCHLORIDE
     Dosage: STRENGTH: 1G
     Route: 048
     Dates: end: 20141020
  2. ROCEPHINE [Concomitant]
     Active Substance: CEFTRIAXONE SODIUM
     Route: 042
     Dates: start: 20141020, end: 20141021
  3. LOVENOX [Suspect]
     Active Substance: ENOXAPARIN SODIUM
     Route: 058
     Dates: start: 20141021, end: 20141028
  4. TOPALGIC [Suspect]
     Active Substance: TRAMADOL
     Dosage: FREQUENCY:50 MGX4
     Route: 048
     Dates: start: 20141022, end: 20141029
  5. CIPROFLOXACIN. [Concomitant]
     Active Substance: CIPROFLOXACIN
     Route: 048
     Dates: start: 20141018, end: 20141020
  6. HYDROCORTISONE. [Concomitant]
     Active Substance: HYDROCORTISONE
     Dates: start: 20141022
  7. ACUPAN [Suspect]
     Active Substance: NEFOPAM HYDROCHLORIDE
     Route: 030
     Dates: start: 20141022, end: 20141029
  8. PLAVIX [Concomitant]
     Active Substance: CLOPIDOGREL BISULFATE
     Dates: start: 20141106
  9. PRAVASTATIN [Concomitant]
     Active Substance: PRAVASTATIN\PRAVASTATIN SODIUM
     Dosage: STRENGTH: 40 MG
     Route: 048
     Dates: end: 20141026
  10. RAMIPRIL. [Concomitant]
     Active Substance: RAMIPRIL
     Dosage: STRENGTH: 5 MG
     Route: 048
     Dates: end: 20141020
  11. OFLOXACIN. [Concomitant]
     Active Substance: OFLOXACIN
     Dates: end: 20141018
  12. SINGULAIR [Concomitant]
     Active Substance: MONTELUKAST SODIUM
     Dates: end: 20141020
  13. AVODART [Concomitant]
     Active Substance: DUTASTERIDE
  14. DOLIPRANE [Concomitant]
     Active Substance: ACETAMINOPHEN
  15. VOLTARENE [Concomitant]
     Active Substance: DICLOFENAC SODIUM
     Dosage: ROUTE: CUT
     Dates: end: 20141020
  16. FLECAINE [Concomitant]
     Active Substance: FLECAINIDE
     Dosage: STRENGTH: 100MG
     Route: 048
     Dates: end: 20141029
  17. PLAVIX [Concomitant]
     Active Substance: CLOPIDOGREL BISULFATE
     Route: 048
     Dates: end: 20141023
  18. OMNIPAQUE [Concomitant]
     Active Substance: IOHEXOL
     Route: 042
     Dates: start: 20141021, end: 20141021
  19. OMEPRAZOLE. [Concomitant]
     Active Substance: OMEPRAZOLE
     Dates: start: 20141105
  20. RAMIPRIL. [Concomitant]
     Active Substance: RAMIPRIL
     Dates: start: 20141105
  21. LANTUS [Concomitant]
     Active Substance: INSULIN GLARGINE
     Dates: end: 20141020
  22. OMEPRAZOLE. [Concomitant]
     Active Substance: OMEPRAZOLE
     Dates: end: 20141020
  23. ACTRAPID [Concomitant]
     Active Substance: INSULIN HUMAN
     Dates: start: 20141022, end: 20141025
  24. XANAX [Suspect]
     Active Substance: ALPRAZOLAM
     Route: 048
     Dates: start: 20141021, end: 20141029
  25. PRAVASTATIN [Concomitant]
     Active Substance: PRAVASTATIN\PRAVASTATIN SODIUM
     Dates: start: 20141103
  26. FLAGYL [Concomitant]
     Active Substance: METRONIDAZOLE\METRONIDAZOLE HYDROCHLORIDE
     Route: 042
     Dates: start: 20141020, end: 20141021
  27. TRIMETAZIDINE [Concomitant]
     Active Substance: TRIMETAZIDINE
     Dates: end: 20141029
  28. LANTUS [Concomitant]
     Active Substance: INSULIN GLARGINE
     Dates: start: 20141025

REACTIONS (1)
  - Tubulointerstitial nephritis [Recovered/Resolved]

NARRATIVE: CASE EVENT DATE: 20141025
